FAERS Safety Report 16443304 (Version 1)
Quarter: 2019Q2

REPORT INFORMATION
  Report Type: Spontaneous
  Country: GB (occurrence: GB)
  Receive Date: 20190618
  Receipt Date: 20190618
  Transmission Date: 20190711
  Serious: Yes (Other)
  Sender: FDA-Public Use
  Company Number: GB-SHILPA MEDICARE LIMITED-SML-GB-2019-00139

PATIENT
  Sex: Female

DRUGS (6)
  1. IMATINIB, UNKNOWN [Suspect]
     Active Substance: IMATINIB
     Dosage: 400 MG, UNK(3 MONTH)
     Dates: start: 2017
  2. IMATINIB, UNKNOWN [Suspect]
     Active Substance: IMATINIB
     Dosage: 400 MG, UNK(3 MONTH)
     Route: 065
     Dates: start: 2017
  3. IMATINIB, UNKNOWN [Suspect]
     Active Substance: IMATINIB
     Indication: CHRONIC MYELOID LEUKAEMIA
     Dosage: UNK
     Route: 065
     Dates: start: 200906
  4. IMATINIB, UNKNOWN [Suspect]
     Active Substance: IMATINIB
     Indication: CHRONIC MYELOID LEUKAEMIA
     Dosage: UNK
     Route: 065
     Dates: start: 200906
  5. PONATINIB [Suspect]
     Active Substance: PONATINIB
     Indication: CHRONIC MYELOID LEUKAEMIA
     Dosage: 15 MG, ALTERNATE DAY
     Route: 065
     Dates: start: 201411
  6. NILOTINIB [Suspect]
     Active Substance: NILOTINIB
     Indication: CHRONIC MYELOID LEUKAEMIA
     Dosage: UNK(6 MONTHS TREATMENT CCYR )
     Route: 065
     Dates: start: 201711

REACTIONS (14)
  - Peripheral arterial occlusive disease [Unknown]
  - Migraine [Unknown]
  - Constipation [Unknown]
  - Ulcer [Unknown]
  - Cytogenetic analysis abnormal [Unknown]
  - Urticaria [Unknown]
  - Atrial fibrillation [Unknown]
  - Nausea [Unknown]
  - Rash [Unknown]
  - Therapeutic response decreased [Unknown]
  - Lethargy [Unknown]
  - Peripheral vascular disorder [Unknown]
  - Diarrhoea [Unknown]
  - Vomiting [Unknown]
